FAERS Safety Report 4681910-7 (Version None)
Quarter: 2005Q2

REPORT INFORMATION
  Report Type: 
  Country: None (occurrence: None)
  Receive Date: 20050602
  Receipt Date: 20050523
  Transmission Date: 20051028
  Serious: Yes (Other)
  Sender: FDA-Public Use
  Company Number: 2005079925

PATIENT
  Age: 56 Year
  Sex: Female

DRUGS (1)
  1. DOXORUBICIN HYDROCHLORIDE [Suspect]
     Indication: OVARIAN CANCER
     Dosage: UNK (UNKNOWN), INTRAVENOUS
     Route: 042
     Dates: start: 20040101, end: 20040401

REACTIONS (2)
  - ALVEOLITIS FIBROSING [None]
  - PNEUMONIA [None]
